FAERS Safety Report 4960470-7 (Version None)
Quarter: 2006Q2

REPORT INFORMATION
  Report Type: 
  Country: None (occurrence: None)
  Receive Date: 20060403
  Receipt Date: 20060330
  Transmission Date: 20061013
  Serious: Yes (Hospitalization)
  Sender: FDA-Public Use
  Company Number: FR-GLAXOSMITHKLINE-B0418654A

PATIENT
  Age: 58 Year
  Sex: Male
  Weight: 61 kg

DRUGS (8)
  1. CLAMOXYL [Suspect]
     Dosage: 1G TWICE PER DAY
     Route: 048
     Dates: start: 20060206, end: 20060213
  2. TOPREC [Suspect]
     Dosage: 1UNIT THREE TIMES PER DAY
     Route: 048
     Dates: start: 20060203, end: 20060213
  3. EFFERALGAN [Concomitant]
     Indication: HEADACHE
     Dosage: 1UNIT THREE TIMES PER DAY
     Route: 048
     Dates: start: 20060214, end: 20060215
  4. ROCEPHIN [Concomitant]
     Indication: HEADACHE
     Dosage: 1G PER DAY
     Route: 042
     Dates: start: 20060214, end: 20060215
  5. DETURGYLONE [Concomitant]
     Dates: start: 20060206
  6. VIRLIX [Concomitant]
     Dates: start: 20060206
  7. CLARYTINE [Concomitant]
     Dates: start: 20060213
  8. MYCOSTATIN [Concomitant]
     Dates: start: 20060213

REACTIONS (5)
  - BLISTER [None]
  - CUTANEOUS VASCULITIS [None]
  - HAEMORRHAGE SUBCUTANEOUS [None]
  - PURPURA [None]
  - RASH [None]
